FAERS Safety Report 16097065 (Version 2)
Quarter: 2019Q3

REPORT INFORMATION
  Report Type: Spontaneous
  Country: DE (occurrence: DE)
  Receive Date: 20190320
  Receipt Date: 20190912
  Transmission Date: 20191004
  Serious: Yes (Hospitalization)
  Sender: FDA-Public Use
  Company Number: DE-BAUSCH-BL-2019-008427

PATIENT
  Age: 51 Year
  Sex: Female
  Weight: 67 kg

DRUGS (4)
  1. MOVIPREP [Suspect]
     Active Substance: ASCORBIC ACID\POLYETHYLENE GLYCOL 3350\POTASSIUM CHLORIDE\SODIUM ASCORBATE\SODIUM CHLORIDE\SODIUM SULFATE
     Indication: BOWEL PREPARATION
     Route: 065
     Dates: start: 20181203, end: 20181203
  2. HUMIRA [Suspect]
     Active Substance: ADALIMUMAB
     Indication: PSORIASIS
     Route: 058
     Dates: start: 201808
  3. HUMIRA [Suspect]
     Active Substance: ADALIMUMAB
     Indication: PSORIATIC ARTHROPATHY
  4. KLYSMA SALINISCH [Concomitant]
     Indication: BOWEL PREPARATION

REACTIONS (25)
  - Aortic arteriosclerosis [Unknown]
  - Nasal oedema [Recovered/Resolved]
  - Arthralgia [Unknown]
  - Eosinophilia [Unknown]
  - Hypertension [Unknown]
  - Abdominal pain [Unknown]
  - Ocular hyperaemia [Unknown]
  - Occult blood positive [Unknown]
  - Erosive duodenitis [Unknown]
  - General physical health deterioration [Unknown]
  - Skin disorder [Recovering/Resolving]
  - Erythema [Unknown]
  - Lacrimation increased [Recovered/Resolved]
  - Asthma [Unknown]
  - Back pain [Unknown]
  - Chronic gastritis [Unknown]
  - Swelling face [Recovered/Resolved]
  - Lymphoid tissue hyperplasia [Unknown]
  - Gastric mucosa erythema [Unknown]
  - Eczema [Unknown]
  - Drug intolerance [Unknown]
  - Constipation [Unknown]
  - Haematochezia [Recovered/Resolved]
  - Mucosal excoriation [Unknown]
  - Faeces hard [Unknown]

NARRATIVE: CASE EVENT DATE: 20181203
